FAERS Safety Report 8702168 (Version 4)
Quarter: 2013Q2

REPORT INFORMATION
  Report Type: Report from Study
  Country: JP (occurrence: JP)
  Receive Date: 20120803
  Receipt Date: 20130531
  Transmission Date: 20140414
  Serious: Yes (Hospitalization, Other)
  Sender: FDA-Public Use
  Company Number: JP-009507513-1207JPN012593

PATIENT
  Age: 66 Year
  Sex: Male
  Weight: 50 kg

DRUGS (15)
  1. PEGINTRON [Suspect]
     Indication: CHRONIC HEPATITIS C
     Dosage: 1.204 MICROGRAM PER KILOGRAMS/WEEK
     Route: 058
     Dates: start: 20120316, end: 20120318
  2. PEGINTRON [Suspect]
     Dosage: 1.024 MICROGRAM PER KILOGRAMS PER WEEK
     Route: 058
     Dates: start: 20120417, end: 20120617
  3. PEGINTRON [Suspect]
     Dosage: 1.5 MICROGRAM PER KILOGRAM, QW
     Route: 058
     Dates: start: 20120618, end: 20120806
  4. REBETOL [Suspect]
     Indication: CHRONIC HEPATITIS C
     Dosage: 600 MG, QD
     Route: 048
     Dates: start: 20120316, end: 20120318
  5. REBETOL [Suspect]
     Dosage: 600 MG, QD
     Route: 048
     Dates: start: 20120417, end: 20120806
  6. TELAVIC [Suspect]
     Indication: CHRONIC HEPATITIS C
     Dosage: 1500 MILLIGRAMS, QD
     Route: 048
     Dates: start: 20120316, end: 20120318
  7. TELAVIC [Suspect]
     Dosage: 1500 MILLIGRAMS, QD
     Route: 048
     Dates: start: 20120417, end: 20120806
  8. VOLTAREN [Concomitant]
     Indication: PROPHYLAXIS
     Route: 054
     Dates: start: 20120316, end: 20120317
  9. PONTAL [Concomitant]
     Indication: PYREXIA
     Dosage: UNK, PRN
     Route: 048
     Dates: start: 20120507
  10. PREDNISOLONE [Concomitant]
     Indication: PROPHYLAXIS
     Dosage: 10 MG, QD
     Route: 048
     Dates: start: 20120417, end: 20120506
  11. PREDNISOLONE [Concomitant]
     Dosage: 5 MG, QD
     Route: 048
     Dates: start: 20120507, end: 20120514
  12. GASTER D [Concomitant]
     Indication: PROPHYLAXIS
     Dosage: 20 MG, QD
     Route: 048
     Dates: start: 20120417
  13. DIFLAL [Concomitant]
     Indication: PROPHYLAXIS
     Dosage: UNK, PRN
     Route: 061
     Dates: start: 20120417
  14. LOXONIN [Concomitant]
     Indication: PROPHYLAXIS
     Dosage: 60 MG, PRN, FORMULATION POR
     Route: 048
     Dates: start: 20120611, end: 20120618
  15. SELBEX [Concomitant]
     Indication: PROPHYLAXIS
     Dosage: 0.5 MG, PRN, AS NEEDED
     Route: 048
     Dates: start: 20120611, end: 20120618

REACTIONS (4)
  - Erythema [Recovering/Resolving]
  - Erythema [Recovered/Resolved]
  - Pyrexia [Recovering/Resolving]
  - Pyrexia [Recovering/Resolving]
